FAERS Safety Report 6764977-1 (Version None)
Quarter: 2010Q2

REPORT INFORMATION
  Report Type: 
  Country: None (occurrence: None)
  Receive Date: 20100610
  Receipt Date: 20100603
  Transmission Date: 20101027
  Serious: Yes (Hospitalization)
  Sender: FDA-Public Use
  Company Number: PHHO2010NL00868

PATIENT
  Sex: Male
  Weight: 93 kg

DRUGS (3)
  1. NEORAL [Suspect]
     Indication: RENAL TRANSPLANT
     Dosage: 350MG/DAY
     Route: 048
     Dates: start: 20050119
  2. MYCOPHENOLIC ACID [Suspect]
     Indication: RENAL TRANSPLANT
     Dosage: 1440MG/DAY
     Route: 048
     Dates: start: 20050119
  3. PREDNISONE [Concomitant]
     Indication: RENAL TRANSPLANT
     Dosage: 350MG
     Route: 048
     Dates: start: 20050119

REACTIONS (2)
  - CARDIOVASCULAR DISORDER [None]
  - MYOCARDIAL INFARCTION [None]
